FAERS Safety Report 12540544 (Version 1)
Quarter: 2016Q3

REPORT INFORMATION
  Report Type: Spontaneous
  Country: US (occurrence: US)
  Receive Date: 20160708
  Receipt Date: 20160708
  Transmission Date: 20161109
  Serious: No
  Sender: FDA-Public Use
  Company Number: US-DRREDDYS-USA/USA/15/0050025

PATIENT
  Sex: Female
  Weight: 57.6 kg

DRUGS (1)
  1. LANSOPRAZOLE DR CAPSULES OTC [Suspect]
     Active Substance: LANSOPRAZOLE
     Indication: DYSPEPSIA
     Route: 065
     Dates: start: 20150807

REACTIONS (2)
  - Drug ineffective [Unknown]
  - Product quality issue [Unknown]
